FAERS Safety Report 18615468 (Version 1)
Quarter: 2020Q4

REPORT INFORMATION
  Report Type: Spontaneous
  Country: CN (occurrence: CN)
  Receive Date: 20201215
  Receipt Date: 20201215
  Transmission Date: 20210114
  Serious: Yes (Other)
  Sender: FDA-Public Use
  Company Number: CN-JIANGSU HENGRUI MEDICINE CO., LTD.-2102993

PATIENT
  Age: 26 Year
  Sex: Male

DRUGS (3)
  1. DOCETAXEL INJECTION USP, 20 MG/1 ML, 80 MG/4 ML, AND 160 MG/8 ML (20 M [Suspect]
     Active Substance: DOCETAXEL
     Indication: NASOPHARYNGEAL CANCER
  2. CISPLATIN. [Suspect]
     Active Substance: CISPLATIN
  3. FLUOROURACIL. [Suspect]
     Active Substance: FLUOROURACIL

REACTIONS (2)
  - Product use in unapproved indication [Unknown]
  - Anaphylactoid reaction [Recovered/Resolved]
